FAERS Safety Report 5567383-0 (Version None)
Quarter: 2007Q4

REPORT INFORMATION
  Report Type: 
  Country: None (occurrence: None)
  Receive Date: 20071214
  Receipt Date: 20071212
  Transmission Date: 20080405
  Serious: Yes (Life-Threatening, Hospitalization)
  Sender: FDA-Public Use
  Company Number: TCI2007A05010

PATIENT
  Age: 49 Year
  Sex: Male

DRUGS (1)
  1. LANSAP (LANSOPRAZOLE, CLARITHROMYCIN, AMOXICILLIN) (PREPARATION FOR OR [Suspect]
     Indication: HELICOBACTER INFECTION
     Dosage: 1 CARD (0.5 CARD, 2 IN 1 D) PER ORAL
     Route: 048
     Dates: start: 20070905, end: 20070909

REACTIONS (25)
  - ASCITES [None]
  - BACTERIAL SEPSIS [None]
  - BILIRUBIN CONJUGATED INCREASED [None]
  - BLOOD ALBUMIN DECREASED [None]
  - BLOOD ALKALINE PHOSPHATASE INCREASED [None]
  - BLOOD DISORDER [None]
  - BLOOD LACTATE DEHYDROGENASE INCREASED [None]
  - BLOOD PRESSURE INCREASED [None]
  - CONTINUOUS HAEMODIAFILTRATION [None]
  - DEHYDRATION [None]
  - DISSEMINATED INTRAVASCULAR COAGULATION [None]
  - EATING DISORDER [None]
  - HAEMATOCRIT DECREASED [None]
  - HAEMOGLOBIN DECREASED [None]
  - HEPATITIS B SURFACE ANTIGEN POSITIVE [None]
  - HEPATOMEGALY [None]
  - LIVER DISORDER [None]
  - LYMPHADENOPATHY MEDIASTINAL [None]
  - PLEURAL EFFUSION [None]
  - PROCALCITONIN INCREASED [None]
  - PROTEIN TOTAL DECREASED [None]
  - PSEUDOMEMBRANOUS COLITIS [None]
  - RENAL FAILURE [None]
  - RESPIRATORY DISORDER [None]
  - RESPIRATORY FAILURE [None]
